FAERS Safety Report 8544117-9 (Version None)
Quarter: 2012Q3

REPORT INFORMATION
  Report Type: 
  Country: None (occurrence: None)
  Receive Date: 20120727
  Receipt Date: 20120629
  Transmission Date: 20120928
  Serious: Yes (Life-Threatening, Hospitalization)
  Sender: FDA-Public Use
  Company Number: JP-SP-2012-05619

PATIENT
  Sex: Female
  Weight: 46 kg

DRUGS (7)
  1. DICLOFENAC SODIUM [Concomitant]
     Route: 048
  2. ONEALFA [Concomitant]
     Route: 048
  3. IMMUCYST [Suspect]
     Indication: BLADDER CANCER
     Route: 043
     Dates: start: 20120508, end: 20120522
  4. ISONIAZID [Concomitant]
     Route: 048
  5. RIFADIN [Concomitant]
     Route: 048
  6. LEVOFLOXACIN [Concomitant]
     Route: 048
  7. MICARDIS [Concomitant]

REACTIONS (2)
  - HYPOXIA [None]
  - INTERSTITIAL LUNG DISEASE [None]
